FAERS Safety Report 6405966-6 (Version None)
Quarter: 2009Q4

REPORT INFORMATION
  Report Type: 
  Country: None (occurrence: None)
  Receive Date: 20091019
  Receipt Date: 20091008
  Transmission Date: 20100525
  Serious: Yes (Hospitalization)
  Sender: FDA-Public Use
  Company Number: US-BIOGENIDEC-2009BI022209

PATIENT
  Age: 65 Year
  Sex: Female

DRUGS (1)
  1. TYSABRI [Suspect]
     Indication: MULTIPLE SCLEROSIS
     Route: 042
     Dates: start: 20081112

REACTIONS (6)
  - ARTHRALGIA [None]
  - DECUBITUS ULCER [None]
  - HIP FRACTURE [None]
  - MEDICAL DEVICE COMPLICATION [None]
  - PRURITUS [None]
  - URTICARIA [None]
